FAERS Safety Report 7823311-6 (Version None)
Quarter: 2011Q4

REPORT INFORMATION
  Report Type: 
  Country: None (occurrence: None)
  Receive Date: 20111014
  Receipt Date: 20111003
  Transmission Date: 20120403
  Serious: Yes (Other)
  Sender: FDA-Public Use
  Company Number: 124423

PATIENT
  Age: 55 Year
  Sex: Female

DRUGS (2)
  1. CERUBIDINE [Suspect]
     Indication: ACUTE LEUKAEMIA
     Dosage: 35MG/M2, 1X/DAY, IV; 60MG/M2, 1X/DAY, IV
     Route: 042
     Dates: start: 20081029, end: 20081030
  2. CERUBIDINE [Suspect]
     Indication: ACUTE LEUKAEMIA
     Dosage: 35MG/M2, 1X/DAY, IV; 60MG/M2, 1X/DAY, IV
     Route: 042
     Dates: start: 20081013, end: 20081015

REACTIONS (1)
  - CYTOLYTIC HEPATITIS [None]
